FAERS Safety Report 6968987-0 (Version None)
Quarter: 2010Q3

REPORT INFORMATION
  Report Type: 
  Country: None (occurrence: None)
  Receive Date: 20100907
  Receipt Date: 20100826
  Transmission Date: 20110219
  Serious: Yes (Other)
  Sender: FDA-Public Use
  Company Number: CHNY2009ES03570

PATIENT
  Age: 71 Year
  Sex: Male

DRUGS (6)
  1. TERBINAFINE HCL [Suspect]
     Dosage: 1 DF, QD
     Route: 061
     Dates: start: 20080701
  2. ACENOCOUMAROL (NGX) [Interacting]
     Dosage: 13 MG, QW
     Route: 048
     Dates: start: 20040101
  3. DILTIAZEM [Concomitant]
     Dosage: 60 MG, BID
     Route: 048
  4. LANSOPRAZOLE [Concomitant]
     Dosage: 30 MG, BID
  5. ATORVASTATIN [Concomitant]
     Dosage: 20 MG, QD
  6. METFORMIN [Concomitant]
     Dosage: 850 MG, TID

REACTIONS (6)
  - DRUG INTERACTION [None]
  - INFLAMMATION [None]
  - INTERNATIONAL NORMALISED RATIO INCREASED [None]
  - PAIN IN EXTREMITY [None]
  - PETECHIAE [None]
  - SKIN HAEMORRHAGE [None]
